FAERS Safety Report 9238080 (Version 1)
Quarter: 2013Q1

REPORT INFORMATION
  Report Type: Spontaneous
  Country: US (occurrence: None)
  Receive Date: 20121106
  Receipt Date: 20121106
  Transmission Date: 20140127
  Serious: No
  Sender: FDA-Public Use
  Company Number: 1000038318

PATIENT
  Age: 76 Year
  Sex: Male

DRUGS (2)
  1. DALIRESP [Suspect]
     Indication: ASTHMA
     Dosage: (500 MCG, 1 IN 1 D)
     Dates: start: 20120823, end: 20120830
  2. ADVAIR (SERETIDE) (SERETIDE) [Concomitant]

REACTIONS (3)
  - Abdominal pain upper [None]
  - Constipation [None]
  - Flatulence [None]
